FAERS Safety Report 10051152 (Version 2)
Quarter: 2014Q2

REPORT INFORMATION
  Report Type: Report from Study
  Country: JP (occurrence: JP)
  Receive Date: 20140401
  Receipt Date: 20140401
  Transmission Date: 20141212
  Serious: Yes (Other)
  Sender: FDA-Public Use
  Company Number: JP-VERTEX PHARMACEUTICALS INC-AE-2012-004506

PATIENT
  Age: 55 Year
  Sex: Male

DRUGS (17)
  1. VX-950 (TELAPREVIR) [Suspect]
     Indication: CHRONIC HEPATITIS C
     Dosage: 2250 MG, QD
     Route: 048
     Dates: start: 20120118, end: 20120214
  2. VX-950 (TELAPREVIR) [Suspect]
     Dosage: 1500 MG, QD
     Route: 048
     Dates: start: 20120215, end: 20120319
  3. PEGINTERFERON ALFA-2B [Suspect]
     Indication: CHRONIC HEPATITIS C
     Dosage: 1.5 ?G/KG, QW
     Route: 058
     Dates: start: 20120118, end: 20120704
  4. RIBAVIRIN [Suspect]
     Indication: CHRONIC HEPATITIS C
     Dosage: 800 MG, QD
     Route: 048
     Dates: start: 20120118, end: 20120214
  5. RIBAVIRIN [Suspect]
     Dosage: 600 MG, QD
     Route: 048
     Dates: start: 20120215, end: 20120301
  6. RIBAVIRIN [Suspect]
     Dosage: 400 MG, QD
     Route: 048
     Dates: start: 20120302, end: 20120306
  7. RIBAVIRIN [Suspect]
     Dosage: 200 MG, QD
     Route: 048
     Dates: start: 20120307, end: 20120319
  8. RIBAVIRIN [Suspect]
     Dosage: 200 MG, QD
     Route: 048
     Dates: start: 20120509, end: 20120515
  9. RIBAVIRIN [Suspect]
     Dosage: 400 MG, QD
     Route: 048
     Dates: start: 20120516, end: 20120522
  10. RIBAVIRIN [Suspect]
     Dosage: 600 MG, QD
     Route: 048
     Dates: start: 20120523, end: 20120707
  11. VOLTAREN [Concomitant]
     Dosage: 25 MG, UNK
     Route: 054
     Dates: start: 20120118
  12. EBASTEL [Concomitant]
     Route: 048
     Dates: start: 20120118, end: 20120206
  13. LIVACT [Concomitant]
     Route: 048
     Dates: start: 20120307
  14. LIVACT [Concomitant]
     Dosage: 3 DF, UNK
     Route: 048
  15. TSUMURA SHAKUYAKUKANZOUTOU [Concomitant]
     Dosage: 7.5 G, UNK
     Route: 048
     Dates: start: 20120307, end: 20120403
  16. ACINON [Concomitant]
     Dosage: 300 MG, UNK
     Route: 048
     Dates: start: 20120118, end: 20120207
  17. SELBEX [Concomitant]
     Dosage: 150 MG, UNK
     Route: 048
     Dates: start: 20120119, end: 20120207

REACTIONS (3)
  - Erythema multiforme [Recovering/Resolving]
  - Haemoglobin decreased [Recovered/Resolved]
  - White blood cell count decreased [Recovered/Resolved]
